FAERS Safety Report 4384955-X (Version None)
Quarter: 2004Q2

REPORT INFORMATION
  Report Type: 
  Country: None (occurrence: None)
  Receive Date: 20040625
  Receipt Date: 20040615
  Transmission Date: 20050107
  Serious: Yes (Other)
  Sender: FDA-Public Use
  Company Number: PHNR2004AU01068

PATIENT
  Sex: Female
  Weight: 83 kg

DRUGS (2)
  1. TEGRETOL [Suspect]
     Dosage: 3 DF, QD
     Route: 048
     Dates: start: 20030512, end: 20030618
  2. TRISEQUENS [Concomitant]
     Indication: MENOPAUSAL SYMPTOMS
     Dosage: 2 MG, QD
     Route: 048

REACTIONS (1)
  - HEPATITIS GRANULOMATOUS [None]
